FAERS Safety Report 11470426 (Version 2)
Quarter: 2015Q3

REPORT INFORMATION
  Report Type: Spontaneous
  Country: US (occurrence: US)
  Receive Date: 20150903
  Receipt Date: 20150903
  Transmission Date: 20151125
  Serious: No
  Sender: FDA-Public Use
  Company Number: US-ELI_LILLY_AND_COMPANY-US201112003469

PATIENT
  Age: 54 Year
  Sex: Male

DRUGS (7)
  1. CYMBALTA [Suspect]
     Active Substance: DULOXETINE HYDROCHLORIDE
     Dosage: 30 MG, QD
     Dates: start: 20111106, end: 20111122
  2. CYMBALTA [Suspect]
     Active Substance: DULOXETINE HYDROCHLORIDE
     Dosage: 30 MG, 2/W
     Dates: start: 201111, end: 20111120
  3. CYMBALTA [Suspect]
     Active Substance: DULOXETINE HYDROCHLORIDE
     Indication: MIGRAINE
     Dosage: 30 MG, QD
     Dates: start: 20111005, end: 20111103
  4. NADOLOL. [Concomitant]
     Active Substance: NADOLOL
  5. CYMBALTA [Suspect]
     Active Substance: DULOXETINE HYDROCHLORIDE
     Dosage: 30 MG, BID
     Dates: start: 20111104, end: 20111108
  6. PRILOSEC [Concomitant]
     Active Substance: OMEPRAZOLE MAGNESIUM
  7. CYMBALTA [Suspect]
     Active Substance: DULOXETINE HYDROCHLORIDE
     Dosage: 30 MG, QOD
     Dates: start: 201111, end: 201111

REACTIONS (11)
  - Mania [Unknown]
  - Myalgia [Recovered/Resolved]
  - Dry mouth [Recovered/Resolved]
  - Dizziness [Unknown]
  - Off label use [Recovered/Resolved]
  - Irritability [Unknown]
  - Pain [Recovered/Resolved]
  - Headache [Unknown]
  - Confusional state [Recovered/Resolved]
  - Contusion [Recovered/Resolved]
  - Constipation [Recovered/Resolved]

NARRATIVE: CASE EVENT DATE: 201110
